FAERS Safety Report 4945107-5 (Version None)
Quarter: 2006Q1

REPORT INFORMATION
  Report Type: 
  Country: None (occurrence: None)
  Receive Date: 20060314
  Receipt Date: 20060314
  Transmission Date: 20060701
  Serious: Yes (Other)
  Sender: FDA-Public Use
  Company Number: None

PATIENT
  Sex: Female
  Weight: 73.4827 kg

DRUGS (6)
  1. MEPERIDINE [Suspect]
     Indication: PAIN
     Dosage: SEE IMAGE
     Route: 048
     Dates: start: 19560101
  2. LORAZEPAM [Concomitant]
  3. . [Concomitant]
  4. CLONAZEPAM [Concomitant]
  5. AMITRIPTYLINE [Concomitant]
  6. . [Concomitant]

REACTIONS (2)
  - DRUG DEPENDENCE [None]
  - DRUG TOLERANCE INCREASED [None]
